FAERS Safety Report 15189504 (Version 2)
Quarter: 2018Q4

REPORT INFORMATION
  Report Type: Report from Study
  Country: CA (occurrence: CA)
  Receive Date: 20180724
  Receipt Date: 20181010
  Transmission Date: 20190204
  Serious: Yes (Other)
  Sender: FDA-Public Use
  Company Number: CA-PFIZER INC-2018291994

PATIENT

DRUGS (2)
  1. VINCRISTINE SULFATE. [Suspect]
     Active Substance: VINCRISTINE SULFATE
     Indication: GLIOMA
     Dosage: 1.5 MG/M2, WEEKLY (TOTAL DOSE OF 51 MG/M2)
  2. CARBOPLATIN. [Suspect]
     Active Substance: CARBOPLATIN
     Indication: GLIOMA
     Dosage: TOTAL DOSE OF 7000 MG/M2, CYCLIC

REACTIONS (2)
  - Dysphagia [Unknown]
  - Respiratory distress [Unknown]
